FAERS Safety Report 8984552 (Version 1)
Quarter: 2012Q4

REPORT INFORMATION
  Report Type: 
  Country: US (occurrence: US)
  Receive Date: 20121226
  Receipt Date: 20121226
  Transmission Date: 20130627
  Serious: Yes (Death, Other)
  Sender: FDA-Public Use
  Company Number: US-JNJFOC-20121206678

PATIENT
  Sex: Female

DRUGS (7)
  1. ORTHO EVRA [Suspect]
     Indication: CONTRACEPTION
     Route: 062
  2. NORGESTIMATE/ETHINYL ESTRADIOL [Suspect]
     Indication: CONTRACEPTION
     Dosage: 35 mcg of ethinyl estradiol
     Route: 048
  3. ENZYME INHIBITORS [Concomitant]
     Indication: ENZYME INHIBITION
     Route: 065
  4. COX-2 SELECTIVE INHIBITOR [Concomitant]
     Indication: ENZYME INHIBITION
     Route: 065
  5. NON STERIODAL ANTI INFLAMMATORY DRUG [Concomitant]
     Indication: PRODUCT USED FOR UNKNOWN INDICATION
     Route: 065
  6. ANTICOAGULANT THERAPY [Concomitant]
     Indication: ANTICOAGULANT THERAPY
     Route: 065
  7. ANTITHROMBOTICS [Concomitant]
     Indication: THROMBOSIS PROPHYLAXIS
     Route: 065

REACTIONS (7)
  - Acute myocardial infarction [Fatal]
  - Embolism venous [Fatal]
  - Acute myocardial infarction [Unknown]
  - Embolism venous [Unknown]
  - Cerebrovascular accident [Unknown]
  - Ischaemic stroke [Unknown]
  - Pulmonary embolism [Unknown]
